FAERS Safety Report 11450632 (Version 2)
Quarter: 2015Q3

REPORT INFORMATION
  Report Type: Spontaneous
  Country: NO (occurrence: NO)
  Receive Date: 20150903
  Receipt Date: 20150911
  Transmission Date: 20151125
  Serious: Yes (Death, Hospitalization)
  Sender: FDA-Public Use
  Company Number: PHHY2015NO102020

PATIENT
  Age: 45 Year
  Sex: Male

DRUGS (14)
  1. ONDANSETRON [Concomitant]
     Active Substance: ONDANSETRON
     Indication: NAUSEA
     Dosage: 8 MG, BID
     Route: 048
     Dates: start: 20150115
  2. MEROPENEM. [Concomitant]
     Active Substance: MEROPENEM
     Indication: INFECTION
     Dosage: 500 MG, TID
     Route: 040
     Dates: start: 20150218, end: 20150222
  3. ESOMEPRAZOLE [Suspect]
     Active Substance: ESOMEPRAZOLE
     Indication: PRODUCT USED FOR UNKNOWN INDICATION
     Dosage: 40 MG, ONCE/SINGLE
     Route: 065
  4. YONDELIS [Suspect]
     Active Substance: TRABECTEDIN
     Indication: SARCOMA METASTATIC
     Dosage: 1.5 MG/M2, TIW
     Route: 041
     Dates: start: 20150115, end: 20150206
  5. NEULASTA [Concomitant]
     Active Substance: PEGFILGRASTIM
     Indication: NEUTROPENIA
     Dosage: 6 MG, QD
     Route: 058
     Dates: start: 20150115
  6. FURIX [Concomitant]
     Active Substance: FUROSEMIDE
     Indication: ACUTE KIDNEY INJURY
     Dosage: 10 MG, QID
     Route: 040
     Dates: start: 20150213, end: 20150222
  7. LAXOBERAL [Concomitant]
     Active Substance: SODIUM PICOSULFATE
     Indication: CONSTIPATION
     Dosage: 8 GTT, QD
     Route: 048
     Dates: start: 20150115
  8. APREPITANT. [Suspect]
     Active Substance: APREPITANT
     Dosage: 125 MG, QD DAY 1 OF TRABECTEDIN CYCLE
     Route: 065
     Dates: start: 20150115
  9. AFIPRAN [Concomitant]
     Indication: NAUSEA
     Dosage: 10 MG, TID
     Route: 048
     Dates: start: 20150115
  10. OXYCONTIN [Concomitant]
     Active Substance: OXYCODONE HYDROCHLORIDE
     Indication: PAIN
     Dosage: 10 MG, BID
     Route: 048
     Dates: start: 20150219, end: 20150222
  11. DUPHALAC [Concomitant]
     Active Substance: LACTULOSE
     Indication: CONSTIPATION
     Dosage: 15 ML, BID
     Route: 048
     Dates: start: 20150115
  12. APREPITANT. [Suspect]
     Active Substance: APREPITANT
     Indication: PRODUCT USED FOR UNKNOWN INDICATION
     Dosage: 80 MG, QD DAY  2 AND DAY 3 (OF SECOND TRABECTEDIN CYCLE)
     Route: 065
  13. AZITHROMYCIN [Concomitant]
     Active Substance: AZITHROMYCIN ANHYDROUS
     Indication: INFECTION
     Dosage: 500 MG, QD
     Route: 048
     Dates: start: 20150218, end: 20150222
  14. DEXAMETASON//DEXAMETHASONE [Concomitant]
     Indication: PREMEDICATION
     Dosage: 20 MG, QD
     Route: 048
     Dates: start: 20150115

REACTIONS (8)
  - Pulmonary congestion [Unknown]
  - Lung infiltration [Unknown]
  - Rhabdomyolysis [Fatal]
  - Cholecystitis [Fatal]
  - Hepatic enzyme increased [Fatal]
  - Acute kidney injury [Fatal]
  - Bone marrow failure [Fatal]
  - Hepatic failure [Fatal]

NARRATIVE: CASE EVENT DATE: 201502
